FAERS Safety Report 5971058-3 (Version None)
Quarter: 2008Q4

REPORT INFORMATION
  Report Type: 
  Country: None (occurrence: None)
  Receive Date: 20081128
  Receipt Date: 20081120
  Transmission Date: 20090506
  Serious: Yes (Other)
  Sender: FDA-Public Use
  Company Number: PHEH2006US10891

PATIENT
  Sex: Female
  Weight: 87.982 kg

DRUGS (23)
  1. AREDIA [Suspect]
     Indication: METASTASES TO BONE
     Dosage: 90 MG, UNK
     Dates: start: 20010401, end: 20011101
  2. ZOMETA [Suspect]
     Indication: METASTASES TO BONE
     Dosage: 4 MG, UNK
     Route: 042
     Dates: start: 20020423, end: 20050128
  3. FEMARA [Concomitant]
     Dosage: 2.5 MG, UNK
     Dates: start: 20000101, end: 20060401
  4. OXYCONTIN [Concomitant]
  5. LORAZEPAM [Concomitant]
  6. PERCOCET [Concomitant]
  7. ADVAIR HFA [Concomitant]
  8. CLINDAMYCIN HCL [Concomitant]
  9. FLONASE [Concomitant]
  10. NEXIUM [Concomitant]
  11. CHEMOTHERAPEUTICS NOS [Concomitant]
  12. RADIATION [Concomitant]
     Dosage: UNK
     Dates: start: 20010101
  13. AMOXICILLIN [Concomitant]
  14. COMBIVENT                               /GFR/ [Concomitant]
  15. COUMADIN [Concomitant]
  16. VIOXX [Concomitant]
     Dosage: 50 MG, UNK
  17. EFFEXOR [Concomitant]
     Dosage: 25 MG, UNK
  18. XELODA [Concomitant]
  19. VALTREX [Concomitant]
  20. GEMZAR [Concomitant]
  21. KADIAN ^KNOLL^ [Concomitant]
  22. DILAUDID [Concomitant]
  23. PERIDEX [Concomitant]

REACTIONS (17)
  - ANXIETY [None]
  - BREAST CANCER RECURRENT [None]
  - DECREASED INTEREST [None]
  - FISTULA DISCHARGE [None]
  - GENERAL PHYSICAL HEALTH DETERIORATION [None]
  - HIP ARTHROPLASTY [None]
  - IMPAIRED HEALING [None]
  - JOINT STIFFNESS [None]
  - MALIGNANT NEOPLASM PROGRESSION [None]
  - MASTICATION DISORDER [None]
  - METASTASES TO LIVER [None]
  - METASTASES TO MOUTH [None]
  - OSTEONECROSIS [None]
  - PAIN [None]
  - PAIN IN JAW [None]
  - TOOTH DISORDER [None]
  - TOOTH EXTRACTION [None]
